FAERS Safety Report 23158758 (Version 2)
Quarter: 2023Q4

REPORT INFORMATION
  Report Type: Spontaneous
  Country: SI (occurrence: SI)
  Receive Date: 20231108
  Receipt Date: 20231123
  Transmission Date: 20240110
  Serious: Yes (Other)
  Sender: FDA-Public Use
  Company Number: SI-MYLANLABS-2023M1113341

PATIENT
  Age: 40 Year
  Sex: Female

DRUGS (11)
  1. DABIGATRAN ETEXILATE MESYLATE [Suspect]
     Active Substance: DABIGATRAN ETEXILATE MESYLATE
     Indication: Anticoagulant therapy
  2. DABIGATRAN ETEXILATE MESYLATE [Suspect]
     Active Substance: DABIGATRAN ETEXILATE MESYLATE
     Indication: Ischaemic stroke
  3. BISOPROLOL [Concomitant]
     Active Substance: BISOPROLOL\BISOPROLOL FUMARATE
     Indication: Ischaemic stroke
     Dosage: 1.25 MILLIGRAM
     Route: 065
  4. BISOPROLOL [Concomitant]
     Active Substance: BISOPROLOL\BISOPROLOL FUMARATE
     Indication: Non-compaction cardiomyopathy
  5. SACUBITRIL\VALSARTAN [Concomitant]
     Active Substance: SACUBITRIL\VALSARTAN
     Indication: Ischaemic stroke
     Dosage: 97/103 MG
     Route: 065
  6. SACUBITRIL\VALSARTAN [Concomitant]
     Active Substance: SACUBITRIL\VALSARTAN
     Indication: Non-compaction cardiomyopathy
  7. IVABRADINE [Concomitant]
     Active Substance: IVABRADINE
     Indication: Ischaemic stroke
  8. IVABRADINE [Concomitant]
     Active Substance: IVABRADINE
     Indication: Non-compaction cardiomyopathy
  9. TORSEMIDE [Concomitant]
     Active Substance: TORSEMIDE
     Indication: Ischaemic stroke
  10. TORSEMIDE [Concomitant]
     Active Substance: TORSEMIDE
     Indication: Non-compaction cardiomyopathy
  11. SIMVASTATIN [Concomitant]
     Active Substance: SIMVASTATIN
     Indication: Type IIa hyperlipidaemia

REACTIONS (3)
  - Ischaemic stroke [Unknown]
  - Thrombin time prolonged [Unknown]
  - Off label use [Unknown]
